FAERS Safety Report 20575485 (Version 4)
Quarter: 2022Q2

REPORT INFORMATION
  Report Type: Spontaneous
  Country: CA (occurrence: CA)
  Receive Date: 20220310
  Receipt Date: 20220422
  Transmission Date: 20220720
  Serious: Yes (Other)
  Sender: FDA-Public Use
  Company Number: CA-CELLTRION INC.-2021CA010808

PATIENT

DRUGS (16)
  1. INFLECTRA [Suspect]
     Active Substance: INFLIXIMAB-DYYB
     Indication: Crohn^s disease
     Dosage: 600 MG AT 0, 2 AND 6 WEEKS, THEN EVERY 4 WEEKS
     Route: 042
     Dates: start: 20200225
  2. INFLECTRA [Suspect]
     Active Substance: INFLIXIMAB-DYYB
     Dosage: 600 MG AT 0, 2 AND 6 WEEKS, THEN EVERY 4 WEEKS
     Route: 042
     Dates: start: 20210601
  3. INFLECTRA [Suspect]
     Active Substance: INFLIXIMAB-DYYB
     Dosage: 600 MG AT 0, 2 AND 6 WEEKS, THEN EVERY 4 WEEKS
     Route: 042
     Dates: start: 20210708
  4. INFLECTRA [Suspect]
     Active Substance: INFLIXIMAB-DYYB
     Dosage: 600 MG AT 0, 2 AND 6 WEEKS, THEN EVERY 4 WEEKS
     Route: 042
     Dates: start: 20210812
  5. INFLECTRA [Suspect]
     Active Substance: INFLIXIMAB-DYYB
     Dosage: 600 MG AT 0, 2 AND 6 WEEKS, THEN EVERY 4 WEEKS
     Route: 042
     Dates: start: 20210909
  6. INFLECTRA [Suspect]
     Active Substance: INFLIXIMAB-DYYB
     Dosage: 600 MG AT 0, 2 AND 6 WEEKS, THEN EVERY 4 WEEKS
     Route: 042
     Dates: start: 20211005
  7. INFLECTRA [Suspect]
     Active Substance: INFLIXIMAB-DYYB
     Dosage: 600 MG AT 0, 2 AND 6 WEEKS, THEN EVERY 4 WEEKS
     Route: 042
     Dates: start: 20211109
  8. INFLECTRA [Suspect]
     Active Substance: INFLIXIMAB-DYYB
     Dosage: 600 MG AT 0, 2 AND 6 WEEKS, THEN EVERY 4 WEEKS
     Route: 042
     Dates: start: 20211207
  9. INFLECTRA [Suspect]
     Active Substance: INFLIXIMAB-DYYB
     Dosage: 600 MG, AT 0, 2 AND 6 WEEKS, THEN EVERY 4 WEEKS
     Route: 042
     Dates: start: 20220113
  10. INFLECTRA [Suspect]
     Active Substance: INFLIXIMAB-DYYB
     Dosage: 600 MG,  AT 0, 2 AND 6 WEEKS, THEN EVERY 4 WEEKS
     Route: 042
     Dates: start: 20220203
  11. INFLECTRA [Suspect]
     Active Substance: INFLIXIMAB-DYYB
     Dosage: 600 MG, AT 0, 2 AND 6 WEEKS, THEN EVERY 4 WEEKS
     Route: 042
     Dates: start: 20220324
  12. AZATHIOPRINE [Concomitant]
     Active Substance: AZATHIOPRINE
     Dosage: 1 DF
     Route: 065
  13. BUDESONIDE [Concomitant]
     Active Substance: BUDESONIDE
     Dosage: 1 DF
     Route: 065
  14. LANSOPRAZOLE [Concomitant]
     Active Substance: LANSOPRAZOLE
     Dosage: UNK
  15. PREDNISONE [Concomitant]
     Active Substance: PREDNISONE
     Indication: Crohn^s disease
     Dosage: 30 MG
  16. CHOLECALCIFEROL [Concomitant]
     Active Substance: CHOLECALCIFEROL
     Dosage: 2000 IU, 1X/DAY
     Route: 048

REACTIONS (7)
  - Crohn^s disease [Recovered/Resolved]
  - Mouth ulceration [Unknown]
  - Weight fluctuation [Unknown]
  - Dermatitis psoriasiform [Unknown]
  - Drug ineffective [Unknown]
  - Off label use [Unknown]
  - Inappropriate schedule of product administration [Unknown]

NARRATIVE: CASE EVENT DATE: 20200225
